FAERS Safety Report 16255942 (Version 1)
Quarter: 2019Q2

REPORT INFORMATION
  Report Type: Spontaneous
  Country: SI (occurrence: SI)
  Receive Date: 20190430
  Receipt Date: 20190430
  Transmission Date: 20190711
  Serious: Yes (Life-Threatening, Hospitalization)
  Sender: FDA-Public Use
  Company Number: SI-TEVA-2019-SI-1042836

PATIENT
  Age: 66 Year
  Sex: Female

DRUGS (4)
  1. BOPACATIN 10 MG/ML [Suspect]
     Active Substance: CARBOPLATIN
     Indication: MALIGNANT PERITONEAL NEOPLASM
     Dosage: DOSE 300 MG
     Route: 042
     Dates: start: 20120723, end: 20190325
  2. FODISS 20 MG [Concomitant]
  3. LEKADOL [Concomitant]
     Active Substance: ACETAMINOPHEN
  4. CANDEA HCT 32/12.5 MG [Concomitant]

REACTIONS (9)
  - Cardiac arrest [Recovered/Resolved]
  - Malaise [Recovered/Resolved]
  - Foaming at mouth [Recovered/Resolved]
  - Altered state of consciousness [Recovered/Resolved]
  - Nausea [Recovered/Resolved]
  - Sinus bradycardia [Recovered/Resolved]
  - Erythema [Recovered/Resolved]
  - Anaphylactic reaction [Recovered/Resolved]
  - Muscle spasms [Recovered/Resolved]

NARRATIVE: CASE EVENT DATE: 20190322
